FAERS Safety Report 7197534-6 (Version None)
Quarter: 2010Q4

REPORT INFORMATION
  Report Type: 
  Country: None (occurrence: None)
  Receive Date: 20101227
  Receipt Date: 20100416
  Transmission Date: 20110411
  Serious: Yes (Hospitalization, Other)
  Sender: FDA-Public Use
  Company Number: US-RANBAXY-2010US-33405

PATIENT

DRUGS (20)
  1. GANCICLOVIR [Suspect]
     Indication: ANTIVIRAL PROPHYLAXIS
     Dosage: 500 MG, TID
     Route: 048
     Dates: start: 20080609, end: 20080911
  2. ACYCLOVIR (PLACEBO) [Suspect]
     Indication: ANTIVIRAL PROPHYLAXIS
     Dosage: 400 MG, BID
     Route: 048
     Dates: start: 20080609, end: 20080911
  3. MARIBAVIR (PLACEBO) [Suspect]
     Indication: ANTIVIRAL PROPHYLAXIS
     Dosage: 200 MG, BID
     Route: 048
     Dates: start: 20080609, end: 20080911
  4. CELEXA [Concomitant]
     Indication: PRODUCT USED FOR UNKNOWN INDICATION
     Route: 065
  5. CYCLOSPORINE [Concomitant]
     Indication: PRODUCT USED FOR UNKNOWN INDICATION
     Route: 065
  6. DOCUSATE [Concomitant]
     Indication: CONSTIPATION PROPHYLAXIS
     Route: 065
  7. ESOMEPRAZOLE [Concomitant]
     Indication: PROPHYLAXIS AGAINST GASTROINTESTINAL ULCER
     Route: 065
  8. FERROUS GLUCONATE [Concomitant]
     Indication: PRODUCT USED FOR UNKNOWN INDICATION
     Route: 065
  9. FUROSEMIDE [Concomitant]
     Indication: GENERALISED OEDEMA
     Route: 065
  10. INSULIN [Concomitant]
     Indication: TYPE 1 DIABETES MELLITUS
     Route: 065
  11. LANTUS [Concomitant]
     Indication: PRODUCT USED FOR UNKNOWN INDICATION
     Route: 065
  12. MAGNESIUM GLUCONATE [Concomitant]
     Indication: PRODUCT USED FOR UNKNOWN INDICATION
     Route: 065
  13. METOPROLOL TARTRATE [Concomitant]
     Indication: HYPERTENSION
     Route: 065
  14. MYFORTIC [Concomitant]
     Indication: PROPHYLAXIS AGAINST TRANSPLANT REJECTION
     Route: 065
  15. NORVASC [Concomitant]
     Indication: PRODUCT USED FOR UNKNOWN INDICATION
     Route: 065
  16. PREDNISONE [Concomitant]
     Indication: PROPHYLAXIS AGAINST TRANSPLANT REJECTION
     Route: 065
  17. PROTONIX [Concomitant]
     Indication: PRODUCT USED FOR UNKNOWN INDICATION
     Route: 065
  18. SENNA [Concomitant]
     Indication: CONSTIPATION
     Route: 065
  19. SEPTRA [Concomitant]
     Indication: ANTIFUNGAL PROPHYLAXIS
     Route: 065
  20. URSO FORTE [Concomitant]
     Indication: PRODUCT USED FOR UNKNOWN INDICATION
     Route: 065

REACTIONS (6)
  - CHOLANGITIS [None]
  - CYTOMEGALOVIRUS INFECTION [None]
  - DRUG INEFFECTIVE [None]
  - LIVER TRANSPLANT REJECTION [None]
  - PLEURAL EFFUSION [None]
  - UPPER RESPIRATORY TRACT INFECTION [None]
